FAERS Safety Report 23800345 (Version 1)
Quarter: 2024Q2

REPORT INFORMATION
  Report Type: Spontaneous
  Country: BR (occurrence: BR)
  Receive Date: 20240430
  Receipt Date: 20240430
  Transmission Date: 20240716
  Serious: Yes (Hospitalization, Other)
  Sender: FDA-Public Use
  Company Number: BR-BIOMARINAP-BR-2024-157573

PATIENT

DRUGS (1)
  1. NAGLAZYME [Suspect]
     Active Substance: GALSULFASE
     Indication: Mucopolysaccharidosis VI
     Route: 065

REACTIONS (5)
  - Spinal decompression [Unknown]
  - Respiratory arrest [Recovered/Resolved]
  - Paraplegia [Not Recovered/Not Resolved]
  - Postoperative wound infection [Unknown]
  - Abscess neck [Unknown]
